FAERS Safety Report 8448928-X (Version None)
Quarter: 2012Q2

REPORT INFORMATION
  Report Type: 
  Country: None (occurrence: None)
  Receive Date: 20120619
  Receipt Date: 20120608
  Transmission Date: 20120825
  Serious: Yes (Hospitalization)
  Sender: FDA-Public Use
  Company Number: FR-GLAXOSMITHKLINE-B0806660A

PATIENT
  Sex: Male

DRUGS (3)
  1. CALCIPARINE [Suspect]
     Indication: ACUTE CORONARY SYNDROME
     Dosage: .35ML THREE TIMES PER DAY
     Route: 058
     Dates: start: 20120415, end: 20120416
  2. ARIXTRA [Suspect]
     Indication: ACUTE CORONARY SYNDROME
     Route: 058
     Dates: start: 20120416, end: 20120417
  3. HEPARIN SODIUM [Suspect]
     Indication: ACUTE CORONARY SYNDROME
     Dosage: 5000IUML SINGLE DOSE
     Route: 042
     Dates: start: 20120415

REACTIONS (1)
  - THROMBOCYTOPENIA [None]
